FAERS Safety Report 9432975 (Version 2)
Quarter: 2013Q4

REPORT INFORMATION
  Report Type: Spontaneous
  Country: GB (occurrence: GB)
  Receive Date: 20130731
  Receipt Date: 20131119
  Transmission Date: 20140711
  Serious: Yes (Death, Other)
  Sender: FDA-Public Use
  Company Number: PHHY2013GB081119

PATIENT
  Age: 68 Year
  Sex: Female

DRUGS (2)
  1. SERTRALINE [Suspect]
     Dosage: 50 G, QD
     Dates: start: 20130325
  2. ANTIHYPERTENSIVES [Concomitant]

REACTIONS (6)
  - Completed suicide [Fatal]
  - Condition aggravated [Not Recovered/Not Resolved]
  - Agitation [Not Recovered/Not Resolved]
  - Insomnia [Not Recovered/Not Resolved]
  - Depression [Not Recovered/Not Resolved]
  - Suicidal ideation [Not Recovered/Not Resolved]
